FAERS Safety Report 11173034 (Version 2)
Quarter: 2015Q3

REPORT INFORMATION
  Report Type: Spontaneous
  Country: US (occurrence: US)
  Receive Date: 20150608
  Receipt Date: 20150713
  Transmission Date: 20151125
  Serious: Yes (Other)
  Sender: FDA-Public Use
  Company Number: US-ASTELLAS-2015US019200

PATIENT
  Age: 69 Year
  Sex: Female
  Weight: 46 kg

DRUGS (1)
  1. VESICARE [Suspect]
     Active Substance: SOLIFENACIN SUCCINATE
     Indication: POLLAKIURIA
     Dosage: 10 MG, DAILY
     Route: 048
     Dates: start: 201504, end: 20150513

REACTIONS (2)
  - Urethral stent insertion [Recovered/Resolved]
  - Cataract operation [Unknown]

NARRATIVE: CASE EVENT DATE: 201504
